FAERS Safety Report 8356031-2 (Version None)
Quarter: 2012Q2

REPORT INFORMATION
  Report Type: 
  Country: None (occurrence: None)
  Receive Date: 20120514
  Receipt Date: 20120508
  Transmission Date: 20120825
  Serious: Yes (Death)
  Sender: FDA-Public Use
  Company Number: GB-SANOFI-AVENTIS-2012SA032913

PATIENT
  Age: 26 Year
  Sex: Female

DRUGS (4)
  1. INSULIN GLARGINE [Suspect]
     Dosage: DOSE: 100 U/ML
     Route: 058
  2. SOLOSTAR [Suspect]
     Indication: DEVICE THERAPY
     Route: 065
  3. FLEXPEN [Suspect]
     Indication: DEVICE THERAPY
     Dosage: GIVEN AT MEAL-TIME
     Route: 065
  4. INSULIN ASPART [Suspect]
     Dosage: 100 U/ML, GIVEN AT MEAL-TIME
     Route: 058

REACTIONS (1)
  - CARDIOVASCULAR DISORDER [None]
